FAERS Safety Report 17045189 (Version 2)
Quarter: 2019Q4

REPORT INFORMATION
  Report Type: Report from Study
  Country: None (occurrence: US)
  Receive Date: 20191118
  Receipt Date: 20191125
  Transmission Date: 20200122
  Serious: Yes (Hospitalization, Other)
  Sender: FDA-Public Use
  Company Number: US-ABBVIE-19P-163-3002623-00

PATIENT
  Age: 70 Year
  Sex: Female

DRUGS (5)
  1. METHOTREXATE. [Concomitant]
     Active Substance: METHOTREXATE
     Indication: CROHN^S DISEASE
     Dates: start: 20160826, end: 20170820
  2. HUMIRA [Suspect]
     Active Substance: ADALIMUMAB
     Indication: CROHN^S DISEASE
     Route: 058
     Dates: start: 20160512, end: 20170820
  3. METFORMIN [Concomitant]
     Active Substance: METFORMIN HYDROCHLORIDE
     Indication: CROHN^S DISEASE
  4. CHOLECALCIFEROL [Concomitant]
     Active Substance: CHOLECALCIFEROL
     Indication: CROHN^S DISEASE
     Dates: start: 20150310
  5. FOLIC ACID. [Concomitant]
     Active Substance: FOLIC ACID
     Indication: CROHN^S DISEASE
     Dates: start: 201609

REACTIONS (5)
  - Abscess [Unknown]
  - Pathological fracture [Recovered/Resolved with Sequelae]
  - Decubitus ulcer [Unknown]
  - Osteomyelitis [Recovered/Resolved with Sequelae]
  - Diabetes mellitus [Unknown]

NARRATIVE: CASE EVENT DATE: 20170822
